FAERS Safety Report 14375959 (Version 3)
Quarter: 2018Q1

REPORT INFORMATION
  Report Type: Spontaneous
  Country: US (occurrence: US)
  Receive Date: 20180111
  Receipt Date: 20180226
  Transmission Date: 20180509
  Serious: No
  Sender: FDA-Public Use
  Company Number: US-PFIZER INC-2018004544

PATIENT
  Age: 4 Year
  Sex: Male

DRUGS (3)
  1. QUILLIVANT XR [Suspect]
     Active Substance: METHYLPHENIDATE HYDROCHLORIDE
     Indication: ATTENTION DEFICIT/HYPERACTIVITY DISORDER
     Dosage: 40 MG, DAILY (15 MG (3 ML OF LIQUID) AT BREAKFAST AND LUNCH AND 10 MG (2 ML OF LIQUID) AT DINNER)
     Route: 048
     Dates: start: 2012
  2. QUILLIVANT XR [Suspect]
     Active Substance: METHYLPHENIDATE HYDROCHLORIDE
     Dosage: 40 MG, DAILY (15 MG QAM,15MG QNOON, 10 MG QPM (WITH MEALS))
     Route: 048
     Dates: start: 2013
  3. CYPROHEPTADINE. [Concomitant]
     Active Substance: CYPROHEPTADINE
     Indication: INCREASED APPETITE
     Dosage: 3 ML, 3X/DAY
     Dates: start: 201605

REACTIONS (7)
  - Decreased appetite [Recovering/Resolving]
  - Weight decreased [Not Recovered/Not Resolved]
  - Product use issue [Unknown]
  - Product use issue [Unknown]
  - Therapeutic response shortened [Not Recovered/Not Resolved]
  - Body height below normal [Not Recovered/Not Resolved]
  - Dyspepsia [Unknown]

NARRATIVE: CASE EVENT DATE: 2012
